FAERS Safety Report 12935549 (Version 7)
Quarter: 2017Q1

REPORT INFORMATION
  Report Type: Report from Study
  Country: DE (occurrence: DE)
  Receive Date: 20161114
  Receipt Date: 20170207
  Transmission Date: 20170428
  Serious: Yes (Death, Hospitalization)
  Sender: FDA-Public Use
  Company Number: DE-ROCHE-1845136

PATIENT
  Sex: Female

DRUGS (29)
  1. PIPERACILLIN [Concomitant]
     Active Substance: PIPERACILLIN
     Indication: OROPHARYNGEAL PAIN
     Route: 042
     Dates: start: 20161019
  2. CYCLOPHOSPHAMIDE. [Suspect]
     Active Substance: CYCLOPHOSPHAMIDE
     Indication: B-CELL LYMPHOMA
     Dosage: LAST CYCLE: 28/OCT/2016
     Route: 042
     Dates: start: 20160927, end: 20161124
  3. DOXORUBICINE [Suspect]
     Active Substance: DOXORUBICIN
     Indication: B-CELL LYMPHOMA
     Dosage: LAST CYCLE: 28/OCT/2016
     Route: 042
     Dates: start: 20160927, end: 20161124
  4. PREDNISONE. [Suspect]
     Active Substance: PREDNISONE
     Indication: B-CELL LYMPHOMA
     Dosage: LAST CYCLE: 28/OCT/2016
     Route: 048
     Dates: start: 20160907, end: 20161128
  5. FOLSAURE [Concomitant]
     Active Substance: FOLIC ACID
     Dosage: 1-0-0, ONLY MO+THU
     Route: 048
  6. AMPHOTERICIN B. [Concomitant]
     Active Substance: AMPHOTERICIN B
     Dosage: 1 PIPETTE
     Route: 048
     Dates: start: 20161017
  7. RIVAROXABAN [Concomitant]
     Active Substance: RIVAROXABAN
     Indication: OEDEMA PERIPHERAL
     Route: 048
     Dates: start: 20161012
  8. RITUXIMAB [Suspect]
     Active Substance: RITUXIMAB
     Indication: B-CELL LYMPHOMA
     Dosage: MOST RECENT CYCLE NUMBER: 3, SUBSEQUENT RITUXIMAB DOSE GIVEN PRIOR TO SAE: 12.OCT.2016?DATE LAST RIT
     Route: 042
     Dates: start: 20160926
  9. VINCRISTINE [Suspect]
     Active Substance: VINCRISTINE
     Indication: B-CELL LYMPHOMA
     Dosage: DATE LAST CYCLE OF CHLIP STARTED PRIOR TO SAE:?12.10.16?LAST CYCLE: 28/OCT/2016
     Route: 042
     Dates: start: 20160927, end: 20161124
  10. PANTOPRAZOL NATRIUM [Concomitant]
     Route: 065
  11. METOCLOPRAMIDE. [Concomitant]
     Active Substance: METOCLOPRAMIDE
     Indication: NAUSEA
     Route: 065
  12. PEGFILGRASTIM [Suspect]
     Active Substance: PEGFILGRASTIM
     Indication: B-CELL LYMPHOMA
     Dosage: DATE LAST CYCLE OF CHLIP STARTED PRIOR TO SAE:?12/OCT/2016
     Route: 058
     Dates: start: 20161014
  13. AMPICILLIN [Concomitant]
     Active Substance: AMPICILLIN
     Dosage: 2-0-2
     Route: 048
     Dates: start: 20160913
  14. METOPROLOL SUCCINATE. [Concomitant]
     Active Substance: METOPROLOL SUCCINATE
     Indication: HYPERTENSION
     Route: 048
     Dates: start: 20160901
  15. ZOPICLONE [Concomitant]
     Active Substance: ZOPICLONE
     Indication: SLEEP DISORDER
     Dosage: 0-0-0-1
     Route: 065
  16. LENOGRASTIM [Suspect]
     Active Substance: LENOGRASTIM
     Indication: B-CELL LYMPHOMA
     Dosage: 34 MIO IE
     Route: 058
     Dates: start: 20161019
  17. COLECALCIFEROL [Concomitant]
     Active Substance: CHOLECALCIFEROL
     Dosage: 20000IE, 1-0-0, ONLY FRIDAY
     Route: 048
  18. TAZOBACTAM [Concomitant]
     Active Substance: TAZOBACTAM
     Route: 042
     Dates: start: 20161019
  19. MACROGOL [Concomitant]
     Active Substance: POLYETHYLENE GLYCOLS
     Indication: CONSTIPATION
     Dosage: 1-1-0 BAGS
     Route: 065
  20. ACICLOVIR [Concomitant]
     Active Substance: ACYCLOVIR
     Route: 048
  21. LEVOFLOXACIN. [Concomitant]
     Active Substance: LEVOFLOXACIN
     Route: 048
     Dates: start: 20161017, end: 20161019
  22. PEGFILGRASTIM [Suspect]
     Active Substance: PEGFILGRASTIM
     Dosage: 30 MIO IE/0,5ML,
     Route: 058
     Dates: start: 20161127
  23. FILGRASTIM [Suspect]
     Active Substance: FILGRASTIM
     Indication: B-CELL LYMPHOMA
     Dosage: 30 MIO IE
     Route: 058
     Dates: start: 20161031, end: 20161107
  24. MIRTAZAPINE. [Concomitant]
     Active Substance: MIRTAZAPINE
     Indication: DEPRESSION
     Route: 048
     Dates: start: 20160901
  25. TORASEMID [Concomitant]
     Active Substance: TORSEMIDE
     Indication: CARDIAC FAILURE
     Dosage: 5 MG2 TIMES A DAY(S) FOR 41 DAY(S), 20MG MILLIGRAM(S), 1 TIMES A DAY(S)
     Route: 048
     Dates: start: 20160901
  26. ALLOPURINOL. [Concomitant]
     Active Substance: ALLOPURINOL
     Route: 048
     Dates: start: 20160906
  27. DULOXETINA [Concomitant]
     Active Substance: DULOXETINE
     Indication: DEPRESSION
     Route: 048
     Dates: start: 20160901
  28. ENOXAPARIN SODIUM. [Concomitant]
     Active Substance: ENOXAPARIN SODIUM
     Indication: THROMBOSIS PROPHYLAXIS
     Dosage: FOR 23 DAYS
     Route: 058
     Dates: start: 20160907, end: 20160929
  29. SULFAMETHOXAZOLE/TRIMETHOPRIM [Concomitant]
     Active Substance: SULFAMETHOXAZOLE\TRIMETHOPRIM
     Dosage: 1-0-1, ONLY MO+THU
     Route: 048

REACTIONS (12)
  - Streptococcal infection [Recovered/Resolved]
  - Constipation [Recovered/Resolved]
  - Leukopenia [Recovered/Resolved]
  - Hypokalaemia [Recovered/Resolved]
  - Fatigue [Not Recovered/Not Resolved]
  - Thrombocytopenia [Recovered/Resolved]
  - Dehydration [Recovered/Resolved]
  - Weight decreased [Not Recovered/Not Resolved]
  - Anaemia [Not Recovered/Not Resolved]
  - Lung infection [Fatal]
  - Spinal fracture [Not Recovered/Not Resolved]
  - Dysphagia [Not Recovered/Not Resolved]

NARRATIVE: CASE EVENT DATE: 20161015
